FAERS Safety Report 6556837-6 (Version None)
Quarter: 2010Q1

REPORT INFORMATION
  Report Type: 
  Country: None (occurrence: None)
  Receive Date: 20100128
  Receipt Date: 20100120
  Transmission Date: 20100710
  Serious: Yes (Other)
  Sender: FDA-Public Use
  Company Number: PHHY2010FR02630

PATIENT
  Age: 66 Year
  Sex: Female

DRUGS (5)
  1. FEMARA [Suspect]
     Indication: BREAST CANCER
     Dosage: 2.5 MG, QD
     Route: 048
     Dates: start: 20100101, end: 20100115
  2. LOGROTON [Concomitant]
     Indication: HYPERTENSION
  3. NAPROSYN [Concomitant]
     Indication: OSTEOARTHRITIS
  4. KLIPAL [Concomitant]
     Indication: OSTEOARTHRITIS
  5. TOPALGIC [Concomitant]
     Indication: OSTEOARTHRITIS

REACTIONS (9)
  - BLISTER [None]
  - BURNING SENSATION [None]
  - NECROSIS [None]
  - PRURITUS [None]
  - RASH [None]
  - SKIN DEPIGMENTATION [None]
  - SKIN LESION [None]
  - SWELLING [None]
  - VASCULAR PURPURA [None]
